FAERS Safety Report 7053703-7 (Version None)
Quarter: 2010Q4

REPORT INFORMATION
  Report Type: 
  Country: None (occurrence: None)
  Receive Date: 20101020
  Receipt Date: 20101012
  Transmission Date: 20110411
  Serious: Yes (Hospitalization)
  Sender: FDA-Public Use
  Company Number: A0764971A

PATIENT
  Age: 54 Year
  Sex: Male
  Weight: 88.6 kg

DRUGS (4)
  1. AVANDIA [Suspect]
     Dosage: 4MG TWICE PER DAY
     Route: 048
     Dates: start: 20061221, end: 20070710
  2. AVANDAMET [Suspect]
     Route: 048
     Dates: start: 20010101, end: 20061221
  3. INSULIN [Concomitant]
  4. IMIPRAMINE [Concomitant]

REACTIONS (2)
  - CORONARY ARTERY DISEASE [None]
  - HEART INJURY [None]
